FAERS Safety Report 25244678 (Version 1)
Quarter: 2025Q2

REPORT INFORMATION
  Report Type: Spontaneous
  Country: US (occurrence: US)
  Receive Date: 20250428
  Receipt Date: 20250428
  Transmission Date: 20250717
  Serious: Yes (Hospitalization, Other)
  Sender: Steriscience PTE
  Company Number: US-STERISCIENCE B.V.-2025-ST-000833

PATIENT
  Age: 18 Year
  Sex: Male

DRUGS (2)
  1. ACETYLCYSTEINE [Suspect]
     Active Substance: ACETYLCYSTEINE
     Indication: Liver injury
     Route: 065
  2. ACETYLCYSTEINE [Suspect]
     Active Substance: ACETYLCYSTEINE
     Indication: Epstein-Barr virus infection

REACTIONS (3)
  - Encephalopathy [None]
  - Condition aggravated [None]
  - Drug ineffective for unapproved indication [Unknown]
